FAERS Safety Report 24006097 (Version 1)
Quarter: 2024Q2

REPORT INFORMATION
  Report Type: Spontaneous
  Country: RU (occurrence: RU)
  Receive Date: 20240624
  Receipt Date: 20240624
  Transmission Date: 20240716
  Serious: Yes (Life-Threatening, Other)
  Sender: FDA-Public Use
  Company Number: None

PATIENT
  Age: 46 Year
  Sex: Male
  Weight: 80 kg

DRUGS (2)
  1. ULTRAVIST [Suspect]
     Active Substance: IOPROMIDE
     Indication: Angiocardiogram
     Dosage: 34 ML, ONCE
     Route: 013
     Dates: start: 20240617, end: 20240617
  2. LIDOCAINE [Suspect]
     Active Substance: LIDOCAINE
     Indication: Injection site anaesthesia
     Dosage: 40 MG, ONCE
     Route: 058
     Dates: start: 20240617, end: 20240617

REACTIONS (3)
  - Erythema [Recovered/Resolved]
  - Dyspnoea [Recovering/Resolving]
  - Blood pressure decreased [Recovering/Resolving]

NARRATIVE: CASE EVENT DATE: 20240617
